FAERS Safety Report 5834415-1 (Version None)
Quarter: 2008Q3

REPORT INFORMATION
  Report Type: 
  Country: None (occurrence: None)
  Receive Date: 20080722
  Receipt Date: 20080213
  Transmission Date: 20090109
  Serious: Yes (Hospitalization)
  Sender: FDA-Public Use
  Company Number: 2008BI003736

PATIENT
  Age: 60 Year
  Sex: Female
  Weight: 122.4712 kg

DRUGS (2)
  1. AVONEX [Suspect]
     Indication: MULTIPLE SCLEROSIS
     Dosage: 30 UG ; QW ; IM
     Route: 030
     Dates: start: 20020101, end: 20020101
  2. STEROID [Concomitant]

REACTIONS (3)
  - GAIT DISTURBANCE [None]
  - MEMORY IMPAIRMENT [None]
  - MULTIPLE SCLEROSIS RELAPSE [None]
